FAERS Safety Report 24365078 (Version 2)
Quarter: 2024Q4

REPORT INFORMATION
  Report Type: Spontaneous
  Country: US (occurrence: US)
  Receive Date: 20240926
  Receipt Date: 20241021
  Transmission Date: 20250115
  Serious: Yes (Other)
  Sender: FDC LIMITED
  Company Number: US-FDC-2024USSPO00731

PATIENT
  Sex: Female
  Weight: 53.5 kg

DRUGS (2)
  1. TIMOLOL MALEATE [Suspect]
     Active Substance: TIMOLOL MALEATE
     Indication: Intraocular pressure increased
     Route: 065
  2. LATANOPROST [Concomitant]
     Active Substance: LATANOPROST
     Indication: Product used for unknown indication
     Route: 065

REACTIONS (3)
  - Blindness [Not Recovered/Not Resolved]
  - Eye pruritus [Not Recovered/Not Resolved]
  - Recalled product administered [Unknown]
